FAERS Safety Report 8314241-4 (Version None)
Quarter: 2012Q2

REPORT INFORMATION
  Report Type: 
  Country: None (occurrence: None)
  Receive Date: 20120424
  Receipt Date: 20120417
  Transmission Date: 20120825
  Serious: Yes (Life-Threatening, Hospitalization)
  Sender: FDA-Public Use
  Company Number: 2012SP020152

PATIENT

DRUGS (5)
  1. REBETOL [Suspect]
     Indication: HEPATITIS C
     Dosage: 1200 MG; QD; PO
     Route: 048
     Dates: start: 20120210, end: 20120406
  2. PRESTARIUM /00790701/ [Concomitant]
  3. PEGINTERFERON ALFA-2B [Suspect]
     Dosage: 150 MCG; QW; SC
     Route: 058
     Dates: start: 20120210
  4. INDAPAMID [Concomitant]
  5. ALLOPURINOL [Concomitant]

REACTIONS (4)
  - ANAEMIA [None]
  - CRANIOCEREBRAL INJURY [None]
  - SYNCOPE [None]
  - FALL [None]
